FAERS Safety Report 5528729-2 (Version None)
Quarter: 2007Q4

REPORT INFORMATION
  Report Type: 
  Country: None (occurrence: None)
  Receive Date: 20071113
  Receipt Date: 20071011
  Transmission Date: 20080405
  Serious: Yes (Other)
  Sender: FDA-Public Use
  Company Number: 200717172US

PATIENT
  Age: 72 Year
  Sex: Female

DRUGS (9)
  1. APIDRA [Suspect]
     Indication: TYPE 2 DIABETES MELLITUS
     Dosage: 4 U BID INJ
     Route: 042
     Dates: start: 20070601
  2. OPTICLICK PEN [Suspect]
     Dates: start: 20070601
  3. LANTUS [Suspect]
     Indication: TYPE 2 DIABETES MELLITUS
     Dates: start: 20060101
  4. OPTICLICK [Suspect]
     Dates: start: 20060101
  5. SYNTHROID [Concomitant]
  6. POTASSIUM CHLORIDE (KLOR-CON) [Concomitant]
  7. ^EQUINOPRIL^ [Concomitant]
  8. ATORVASTATIN CALCIUM (LIPITOR) [Concomitant]
  9. HYDROCHLOROTHIAZIDE [Concomitant]

REACTIONS (3)
  - BLOOD GLUCOSE INCREASED [None]
  - HYPOGLYCAEMIA [None]
  - WRONG DRUG ADMINISTERED [None]
